FAERS Safety Report 7135579-2 (Version None)
Quarter: 2010Q4

REPORT INFORMATION
  Report Type: 
  Country: None (occurrence: None)
  Receive Date: 20101119
  Receipt Date: 20101112
  Transmission Date: 20110411
  Serious: Yes (Hospitalization)
  Sender: FDA-Public Use
  Company Number: 2010130542

PATIENT
  Age: 56 Year
  Sex: Female

DRUGS (4)
  1. DALTEPARIN SODIUM [Suspect]
     Indication: LUNG NEOPLASM MALIGNANT
     Dates: start: 20100715
  2. MORPHINE SULFATE [Concomitant]
  3. ACETAMINOPHEN [Concomitant]
  4. DICLOFENAC SODIUM [Concomitant]

REACTIONS (1)
  - ANAEMIA [None]
